FAERS Safety Report 8370978-2 (Version None)
Quarter: 2012Q2

REPORT INFORMATION
  Report Type: 
  Country: None (occurrence: None)
  Receive Date: 20120518
  Receipt Date: 20120510
  Transmission Date: 20120825
  Serious: Yes (Hospitalization, Other)
  Sender: FDA-Public Use
  Company Number: US-MERCK-1201USA00343

PATIENT
  Age: 61 Year
  Sex: Female

DRUGS (6)
  1. FOSAMAX [Suspect]
     Route: 048
     Dates: start: 20020101
  2. ALENDRONATE SODIUM [Suspect]
     Indication: OSTEOPENIA
     Route: 048
     Dates: start: 20080311
  3. FOSAMAX [Suspect]
     Indication: OSTEOPENIA
     Route: 048
     Dates: end: 20100201
  4. VITAMINS (UNSPECIFIED) [Concomitant]
     Route: 065
     Dates: start: 19900101
  5. FOSAMAX [Suspect]
     Route: 048
     Dates: start: 20001120
  6. FOSAMAX [Suspect]
     Route: 048
     Dates: start: 20021017

REACTIONS (17)
  - CERVICAL SPINAL STENOSIS [None]
  - ARTHRITIS [None]
  - CHRONIC OBSTRUCTIVE PULMONARY DISEASE [None]
  - HAEMOGLOBIN DECREASED [None]
  - HYPERCHOLESTEROLAEMIA [None]
  - LUMBAR SPINAL STENOSIS [None]
  - OSTEOPOROSIS [None]
  - INTERVERTEBRAL DISC DEGENERATION [None]
  - LEUKOCYTOSIS [None]
  - PEPTIC ULCER [None]
  - FEMUR FRACTURE [None]
  - FALL [None]
  - OVARIAN CANCER [None]
  - MOBILITY DECREASED [None]
  - GASTROOESOPHAGEAL REFLUX DISEASE [None]
  - BACK PAIN [None]
  - HYPERTENSION [None]
